FAERS Safety Report 7012009-2 (Version None)
Quarter: 2010Q3

REPORT INFORMATION
  Report Type: 
  Country: None (occurrence: None)
  Receive Date: 20100924
  Receipt Date: 20100916
  Transmission Date: 20110219
  Serious: Yes (Hospitalization)
  Sender: FDA-Public Use
  Company Number: PHHO2010FR10634

PATIENT
  Sex: Male
  Weight: 75 kg

DRUGS (12)
  1. NEORAL [Suspect]
     Indication: RENAL TRANSPLANT
     Dosage: 250
     Route: 048
     Dates: start: 20100605
  2. CERTICAN [Suspect]
     Indication: RENAL TRANSPLANT
     Route: 048
  3. SIMULECT [Suspect]
     Indication: RENAL TRANSPLANT
  4. CORTANCYL [Suspect]
     Indication: RENAL TRANSPLANT
     Dosage: 7.5
     Route: 048
     Dates: start: 20100605
  5. CELLCEPT [Suspect]
     Indication: RENAL TRANSPLANT
     Dosage: 3 G
     Route: 048
     Dates: start: 20100603
  6. XANAX [Concomitant]
     Dosage: UNK
  7. KARDEGIC [Concomitant]
     Dosage: UNK
  8. ROVALCYTE [Concomitant]
     Dosage: UNK
  9. BACTRIM [Concomitant]
  10. EUPANTOL [Concomitant]
     Dosage: UNK
  11. AMLODIPINE [Concomitant]
     Dosage: UNK
  12. ACEBUTOLOL HYDROCHLORIDE [Concomitant]
     Dosage: UNK

REACTIONS (3)
  - LYMPHOCELE [None]
  - RENAL FAILURE ACUTE [None]
  - THERAPEUTIC PROCEDURE [None]
